FAERS Safety Report 8924223 (Version 1)
Quarter: 2012Q4

REPORT INFORMATION
  Report Type: 
  Country: US (occurrence: US)
  Receive Date: 20121126
  Receipt Date: 20121126
  Transmission Date: 20130627
  Serious: Yes (Death)
  Sender: FDA-Public Use
  Company Number: US-GLAXOSMITHKLINE-A1002943A

PATIENT
  Age: 77 Year
  Sex: Female
  Weight: 47.7 kg

DRUGS (3)
  1. COREG [Suspect]
     Indication: PRODUCT USED FOR UNKNOWN INDICATION
     Route: 065
  2. REVATIO [Suspect]
     Indication: PULMONARY HYPERTENSION
     Route: 065
     Dates: start: 2012
  3. UNSPECIFIED MEDICATIONS [Concomitant]

REACTIONS (5)
  - Cardiac pacemaker insertion [Unknown]
  - Cardiac disorder [Fatal]
  - Blood potassium abnormal [Unknown]
  - Blood electrolytes abnormal [Unknown]
  - Drug level changed [Unknown]
